FAERS Safety Report 7356146-1 (Version None)
Quarter: 2011Q1

REPORT INFORMATION
  Report Type: 
  Country: None (occurrence: None)
  Receive Date: 20110316
  Receipt Date: 20110218
  Transmission Date: 20110831
  Serious: No
  Sender: FDA-Public Use
  Company Number: US-B.I. PHARMACEUTICALS,INC./RIDGEFIELD-2011-BP-06111BP

PATIENT
  Sex: Female

DRUGS (6)
  1. PRADAXA [Suspect]
     Indication: ATRIAL FIBRILLATION
     Dosage: 300 MG
     Route: 048
     Dates: start: 20110207, end: 20110217
  2. VITAMIN D [Concomitant]
     Indication: PROPHYLAXIS
     Dosage: 500 MG
     Route: 048
  3. NATURE'S CODE FOR WOMEN [Concomitant]
     Indication: PROPHYLAXIS
     Dosage: 40 MG
     Route: 048
  4. PRAVASTATIN [Concomitant]
     Indication: BLOOD CHOLESTEROL INCREASED
     Dosage: 40 MG
     Route: 048
  5. AMLODIPINE [Concomitant]
     Indication: HYPERTENSION
     Dosage: 10 MG
     Route: 048
  6. VITAMIN B-12 [Concomitant]
     Route: 060

REACTIONS (3)
  - GINGIVAL BLEEDING [None]
  - DYSPEPSIA [None]
  - SKIN DISCOLOURATION [None]
